FAERS Safety Report 26055594 (Version 2)
Quarter: 2025Q4

REPORT INFORMATION
  Report Type: Spontaneous
  Country: US (occurrence: US)
  Receive Date: 20251117
  Receipt Date: 20251121
  Transmission Date: 20260118
  Serious: Yes (Other)
  Sender: ABBVIE
  Company Number: US-ABBVIE-6550671

PATIENT
  Age: 89 Year
  Sex: Female

DRUGS (1)
  1. RESTASIS [Suspect]
     Active Substance: CYCLOSPORINE
     Indication: Dry eye
     Dosage: UNKNOWN

REACTIONS (5)
  - Macular degeneration [Not Recovered/Not Resolved]
  - Femur fracture [Unknown]
  - Dry eye [Unknown]
  - Hypoacusis [Not Recovered/Not Resolved]
  - Photophobia [Unknown]
